FAERS Safety Report 8457680-3 (Version None)
Quarter: 2012Q2

REPORT INFORMATION
  Report Type: 
  Country: None (occurrence: None)
  Receive Date: 20120618
  Receipt Date: 20120618
  Transmission Date: 20120825
  Serious: Yes (Other)
  Sender: FDA-Public Use
  Company Number: None

PATIENT
  Age: 62 Year
  Sex: Male
  Weight: 53.978 kg

DRUGS (1)
  1. CELLCEPT [Suspect]
     Indication: RENAL TRANSPLANT
     Dosage: 250 MG 4 TIMES DAILY PO
     Route: 048
     Dates: start: 20011230, end: 20120615

REACTIONS (7)
  - WEIGHT DECREASED [None]
  - PALLOR [None]
  - DIARRHOEA [None]
  - ANAEMIA [None]
  - BRONCHOPULMONARY ASPERGILLOSIS [None]
  - CONTUSION [None]
  - FATIGUE [None]
